FAERS Safety Report 5742437-4 (Version None)
Quarter: 2008Q2

REPORT INFORMATION
  Report Type: 
  Country: None (occurrence: None)
  Receive Date: 20080519
  Receipt Date: 20080509
  Transmission Date: 20081010
  Serious: Yes (Other)
  Sender: FDA-Public Use
  Company Number: GB-TEVA-171508ISR

PATIENT
  Age: 70 Year
  Sex: Female

DRUGS (3)
  1. ATENOLOL [Suspect]
     Indication: HYPERTENSION
     Dates: start: 20060503, end: 20060503
  2. LACTIC ACID [Suspect]
     Dosage: 1 DF
     Dates: start: 20060630, end: 20071106
  3. LACTIC ACID [Suspect]
     Dosage: 2 DF
     Dates: start: 20060630, end: 20071106

REACTIONS (4)
  - ABSCESS [None]
  - GRANULOMA SKIN [None]
  - INJECTION SITE NODULE [None]
  - KELOID SCAR [None]
